FAERS Safety Report 10784606 (Version 2)
Quarter: 2015Q1

REPORT INFORMATION
  Report Type: Spontaneous
  Country: US (occurrence: US)
  Receive Date: 20150211
  Receipt Date: 20150225
  Transmission Date: 20150721
  Serious: Yes (Hospitalization)
  Sender: FDA-Public Use
  Company Number: US-UNITED THERAPEUTICS-UNT-2015-000545

PATIENT
  Age: 47 Year
  Sex: Female
  Weight: 108.84 kg

DRUGS (3)
  1. TYVASO [Suspect]
     Active Substance: TREPROSTINIL
     Indication: PULMONARY ARTERIAL HYPERTENSION
     Dosage: 54 ?G, QID
     Dates: start: 20141205
  2. TYVASO [Suspect]
     Active Substance: TREPROSTINIL
     Dosage: 18-36 MICROGRAMS, QID
     Dates: start: 20141208
  3. WARFARIN [Concomitant]
     Active Substance: WARFARIN
     Indication: PRODUCT USED FOR UNKNOWN INDICATION

REACTIONS (8)
  - Urinary tract infection [Unknown]
  - Dyspnoea [Unknown]
  - Drug dose omission [Recovered/Resolved]
  - Device issue [Recovered/Resolved]
  - Liver disorder [Unknown]
  - Vomiting [Unknown]
  - Dizziness [Recovered/Resolved]
  - Cough [Unknown]

NARRATIVE: CASE EVENT DATE: 201501
